FAERS Safety Report 5413891-2 (Version None)
Quarter: 2007Q3

REPORT INFORMATION
  Report Type: 
  Country: None (occurrence: None)
  Receive Date: 20070814
  Receipt Date: 20070806
  Transmission Date: 20080115
  Serious: Yes (Hospitalization)
  Sender: FDA-Public Use
  Company Number: HQWYE399706AUG07

PATIENT
  Age: 25 Year
  Sex: Female

DRUGS (5)
  1. PACITANE [Suspect]
     Indication: SCHIZOPHRENIA, PARANOID TYPE
     Dosage: 44 MG (OVERDOSE AMOUNT)
  2. CLONAZEPAM [Suspect]
     Dosage: 66 MG (OVERDOSE AMOUNT)
  3. VALPROATE SODIUM [Suspect]
     Indication: SCHIZOPHRENIA, PARANOID TYPE
     Dosage: 22 G (OVERDOSE AMOUNT)
  4. RISPERIDONE [Suspect]
     Indication: SCHIZOPHRENIA, PARANOID TYPE
     Dosage: 88 MG (OVERDOSE AMOUNT)
  5. ZIPRASIDONE HCL [Suspect]
     Indication: SCHIZOPHRENIA, PARANOID TYPE
     Dosage: 880 MG (OVERDOSE AMOUNT)

REACTIONS (14)
  - ATRIAL FIBRILLATION [None]
  - CREPITATIONS [None]
  - ELECTROCARDIOGRAM QT PROLONGED [None]
  - ELECTROCARDIOGRAM ST-T CHANGE [None]
  - HYPOTONIA [None]
  - HYPOVENTILATION [None]
  - INSOMNIA [None]
  - INTENTIONAL OVERDOSE [None]
  - LOSS OF CONSCIOUSNESS [None]
  - MIOSIS [None]
  - OXYGEN SATURATION DECREASED [None]
  - PUPILLARY REFLEX IMPAIRED [None]
  - REFLEXES ABNORMAL [None]
  - SUICIDE ATTEMPT [None]
